FAERS Safety Report 7380123-8 (Version None)
Quarter: 2011Q1

REPORT INFORMATION
  Report Type: 
  Country: None (occurrence: None)
  Receive Date: 20110329
  Receipt Date: 20100604
  Transmission Date: 20110831
  Serious: No
  Sender: FDA-Public Use
  Company Number: US-MYLANLABS-2010S1010116

PATIENT
  Sex: Female
  Weight: 59.88 kg

DRUGS (1)
  1. ESTRADIOL [Suspect]
     Indication: OSTEOPOROSIS
     Dosage: CHANGED QW
     Route: 062
     Dates: start: 20100501

REACTIONS (2)
  - GLOSSODYNIA [None]
  - APPLICATION SITE RASH [None]
